FAERS Safety Report 9996433 (Version 1)
Quarter: 2014Q1

REPORT INFORMATION
  Report Type: Spontaneous
  Country: US (occurrence: None)
  Receive Date: 20140310
  Receipt Date: 20140310
  Transmission Date: 20141002
  Serious: Yes (Other)
  Sender: FDA-Public Use
  Company Number: None

PATIENT
  Age: 56 Year
  Sex: Male
  Weight: 83.92 kg

DRUGS (6)
  1. AMIODARONE [Suspect]
     Indication: ATRIAL FIBRILLATION
     Route: 048
  2. VIT D2 [Concomitant]
  3. INSULIN NOVOLIN [Concomitant]
  4. LISINOPRIL [Concomitant]
  5. MAG OX [Concomitant]
  6. PREDNISONE [Concomitant]

REACTIONS (1)
  - Thyroid disorder [None]
